FAERS Safety Report 5690646-5 (Version None)
Quarter: 2008Q2

REPORT INFORMATION
  Report Type: 
  Country: None (occurrence: None)
  Receive Date: 20080401
  Receipt Date: 20080321
  Transmission Date: 20081010
  Serious: Yes (Other)
  Sender: FDA-Public Use
  Company Number: US-JNJFOC-20080306127

PATIENT
  Sex: Female
  Weight: 88.45 kg

DRUGS (11)
  1. FENTANYL TRANSDERMAL SYSTEM [Suspect]
     Route: 062
  2. FENTANYL TRANSDERMAL SYSTEM [Suspect]
     Indication: BACK PAIN
     Route: 062
  3. ZANTAC [Concomitant]
     Indication: HIATUS HERNIA
     Route: 048
  4. VOLTAREN [Concomitant]
     Indication: ANTIINFLAMMATORY THERAPY
     Route: 048
  5. ALLEGRA D 24 HOUR [Concomitant]
     Indication: MULTIPLE ALLERGIES
     Route: 048
  6. ASPIRIN [Concomitant]
     Indication: DRUG USE FOR UNKNOWN INDICATION
     Route: 048
  7. HYDROMORPHONE HCL [Concomitant]
     Indication: PAIN
     Dosage: 3-5 TIMES DAILY
     Route: 048
  8. PRIMROSE OIL [Concomitant]
     Indication: DRUG USE FOR UNKNOWN INDICATION
     Route: 048
  9. FEXOFENADINE [Concomitant]
     Indication: MULTIPLE ALLERGIES
     Route: 048
  10. ZOLOFT [Concomitant]
     Indication: ANXIETY
     Route: 048
  11. SENOKOT [Concomitant]
     Indication: CONSTIPATION
     Route: 048

REACTIONS (10)
  - APPLICATION SITE EXCORIATION [None]
  - APPLICATION SITE PRURITUS [None]
  - BLOOD CHOLESTEROL INCREASED [None]
  - CONSTIPATION [None]
  - DRUG ADMINISTERED AT INAPPROPRIATE SITE [None]
  - EATING DISORDER [None]
  - INAPPROPRIATE SCHEDULE OF DRUG ADMINISTRATION [None]
  - THERAPEUTIC RESPONSE DECREASED [None]
  - VITAMIN D DEFICIENCY [None]
  - WRONG TECHNIQUE IN DRUG USAGE PROCESS [None]
